FAERS Safety Report 7944839-4 (Version None)
Quarter: 2011Q4

REPORT INFORMATION
  Report Type: 
  Country: None (occurrence: None)
  Receive Date: 20111129
  Receipt Date: 20111123
  Transmission Date: 20120403
  Serious: Yes (Death, Other)
  Sender: FDA-Public Use
  Company Number: SE-PFIZER INC-2011286154

PATIENT
  Age: 46 Year
  Sex: Male

DRUGS (9)
  1. FRAGMIN [Concomitant]
     Dosage: UNK
  2. FENTANYL [Concomitant]
  3. MEROPENEM [Concomitant]
     Dosage: UNK
  4. MIDAZOLAM [Concomitant]
     Dosage: UNK
  5. SOLU-CORTEF [Concomitant]
     Dosage: UNK
  6. CORDARONE [Suspect]
     Indication: ATRIAL FIBRILLATION
     Dosage: 1758 MG, UNK
     Route: 042
     Dates: start: 20100515
  7. XIGRIS [Concomitant]
     Dosage: UNK
  8. DIFLUCAN [Suspect]
     Indication: SEPSIS
     Dosage: 400 MG/24H, UNK
     Route: 042
     Dates: start: 20100514
  9. NEXIUM [Concomitant]
     Dosage: UNK

REACTIONS (2)
  - VENTRICULAR TACHYCARDIA [None]
  - CIRCULATORY COLLAPSE [None]
